FAERS Safety Report 5162754-9 (Version None)
Quarter: 2006Q4

REPORT INFORMATION
  Report Type: 
  Country: None (occurrence: None)
  Receive Date: 20061201
  Receipt Date: 20061127
  Transmission Date: 20070319
  Serious: Yes (Death, Hospitalization)
  Sender: FDA-Public Use
  Company Number: FR-AVENTIS-200614149FR

PATIENT
  Age: 84 Year
  Sex: Male

DRUGS (6)
  1. RIFADIN [Suspect]
     Indication: URINARY TRACT INFECTION
     Route: 048
     Dates: start: 20060530, end: 20060608
  2. LASILIX                            /00032601/ [Concomitant]
     Indication: DRUG USE FOR UNKNOWN INDICATION
     Route: 048
  3. ATENOLOL [Concomitant]
     Indication: DRUG USE FOR UNKNOWN INDICATION
  4. IMOVANE [Concomitant]
     Indication: DRUG USE FOR UNKNOWN INDICATION
  5. XALATAN [Concomitant]
     Indication: DRUG USE FOR UNKNOWN INDICATION
  6. NASONEX [Concomitant]
     Indication: DRUG USE FOR UNKNOWN INDICATION

REACTIONS (10)
  - BRADYCARDIA [None]
  - CARDIO-RESPIRATORY ARREST [None]
  - CONFUSIONAL STATE [None]
  - DIALYSIS [None]
  - DISORIENTATION [None]
  - JAUNDICE [None]
  - RASH MACULAR [None]
  - RESPIRATORY DISTRESS [None]
  - SEPTIC SHOCK [None]
  - SOMNOLENCE [None]
